FAERS Safety Report 7767718-4 (Version None)
Quarter: 2011Q3

REPORT INFORMATION
  Report Type: 
  Country: None (occurrence: None)
  Receive Date: 20110922
  Receipt Date: 20110921
  Transmission Date: 20111222
  Serious: Yes (Disabling)
  Sender: FDA-Public Use
  Company Number: CH-PFIZER INC-2011223761

PATIENT
  Age: 83 Year
  Sex: Male
  Weight: 85 kg

DRUGS (13)
  1. ALDACTONE [Suspect]
     Dosage: UNK
     Route: 048
     Dates: start: 20110401, end: 20110725
  2. BISOPROLOL FUMARATE [Concomitant]
     Route: 048
  3. METOLAZONE [Concomitant]
     Dosage: UNK
     Dates: end: 20110401
  4. ZOLPIDEM [Concomitant]
     Route: 048
  5. MARCUMAR [Concomitant]
     Route: 048
  6. TORAMID [Concomitant]
     Route: 048
  7. ASPIRIN [Concomitant]
     Route: 048
  8. SANALEPSI N [Concomitant]
     Route: 048
  9. PANTOPRAZOLE [Concomitant]
     Route: 048
  10. PAROXETINE HCL [Concomitant]
     Route: 048
  11. POTASSIUM CHLORIDE [Concomitant]
     Dosage: UNK
     Route: 048
     Dates: end: 20110725
  12. PRONTOLAX [Concomitant]
     Route: 048
  13. VITALUX [Concomitant]
     Route: 048

REACTIONS (3)
  - DENTAL CARIES [None]
  - TOOTH DISCOLOURATION [None]
  - TOOTH DISORDER [None]
